FAERS Safety Report 6286268-8 (Version None)
Quarter: 2009Q3

REPORT INFORMATION
  Report Type: 
  Country: None (occurrence: None)
  Receive Date: 20090728
  Receipt Date: 20090716
  Transmission Date: 20100115
  Serious: Yes (Other)
  Sender: FDA-Public Use
  Company Number: GB-PFIZER INC-2009229455

PATIENT
  Age: 31 Year

DRUGS (1)
  1. NICOTINE [Suspect]
     Indication: SMOKING CESSATION THERAPY
     Dosage: 5 DF, WEEKLY
     Route: 045
     Dates: start: 20070101

REACTIONS (4)
  - INCORRECT DRUG ADMINISTRATION DURATION [None]
  - MYDRIASIS [None]
  - OCULAR HYPERAEMIA [None]
  - OVERDOSE [None]
